FAERS Safety Report 21463399 (Version 1)
Quarter: 2022Q4

REPORT INFORMATION
  Report Type: Report from Study
  Country: US (occurrence: US)
  Receive Date: 20221017
  Receipt Date: 20221017
  Transmission Date: 20230112
  Serious: No
  Sender: FDA-Public Use
  Company Number: US-ABBVIE-4145840

PATIENT
  Sex: Male

DRUGS (4)
  1. HUMIRA [Suspect]
     Active Substance: ADALIMUMAB
     Indication: Psoriasis
     Route: 058
  2. HUMIRA [Suspect]
     Active Substance: ADALIMUMAB
  3. Covid -19 Vaccine Pfizer/BioNtech [Concomitant]
     Indication: COVID-19 immunisation
     Dosage: 1ST DOSE 1IN1
     Route: 030
     Dates: start: 20210519, end: 20210519
  4. Covid -19 Vaccine Pfizer/BioNtech [Concomitant]
     Indication: COVID-19 immunisation
     Dosage: 2ND DOSE 1IN1
     Route: 030
     Dates: start: 20210609, end: 20210609

REACTIONS (1)
  - Psoriasis [Unknown]
